FAERS Safety Report 10358988 (Version 1)
Quarter: 2014Q3

REPORT INFORMATION
  Report Type: Spontaneous
  Country: US (occurrence: US)
  Receive Date: 20140804
  Receipt Date: 20140804
  Transmission Date: 20150326
  Serious: No
  Sender: FDA-Public Use
  Company Number: US-BIOGENIDEC-2014BI073689

PATIENT
  Age: 62 Year
  Sex: Male

DRUGS (1)
  1. TECFIDERA [Suspect]
     Active Substance: DIMETHYL FUMARATE
     Indication: MULTIPLE SCLEROSIS
     Route: 048
     Dates: start: 20140612

REACTIONS (2)
  - Diarrhoea [Recovered/Resolved with Sequelae]
  - Gastrointestinal sounds abnormal [Recovered/Resolved with Sequelae]

NARRATIVE: CASE EVENT DATE: 20140715
